FAERS Safety Report 19788354 (Version 2)
Quarter: 2021Q3

REPORT INFORMATION
  Report Type: Spontaneous
  Country: US (occurrence: US)
  Receive Date: 20210903
  Receipt Date: 20210908
  Transmission Date: 20211014
  Serious: Yes (Hospitalization, Other)
  Sender: FDA-Public Use
  Company Number: US-ELI_LILLY_AND_COMPANY-US202108012207

PATIENT
  Age: 65 Year
  Sex: Male

DRUGS (3)
  1. HUMALOG [Suspect]
     Active Substance: INSULIN LISPRO
     Indication: DIABETES MELLITUS
     Dosage: UNK UNK, UNKNOWN
     Route: 058
  2. HUMALOG KWIKPEN [Suspect]
     Active Substance: INSULIN LISPRO
     Indication: TYPE 2 DIABETES MELLITUS
     Dosage: UNK UNK, PRN
     Route: 058
     Dates: start: 2019
  3. HUMALOG KWIKPEN [Suspect]
     Active Substance: INSULIN LISPRO
     Dosage: UNK UNK, PRN
     Route: 058

REACTIONS (13)
  - Atrial fibrillation [Unknown]
  - Cardiac failure [Unknown]
  - Wound [Unknown]
  - Fatigue [Unknown]
  - Cerebrovascular accident [Unknown]
  - Blood glucose increased [Unknown]
  - Confusional state [Unknown]
  - Diabetic neuropathy [Unknown]
  - Memory impairment [Unknown]
  - Cardiac failure [Unknown]
  - Blood glucose increased [Unknown]
  - Apathy [Unknown]
  - Incorrect dose administered [Unknown]

NARRATIVE: CASE EVENT DATE: 2013
